FAERS Safety Report 4408727-2 (Version None)
Quarter: 2004Q3

REPORT INFORMATION
  Report Type: 
  Country: None (occurrence: None)
  Receive Date: 20040727
  Receipt Date: 20040720
  Transmission Date: 20050211
  Serious: Yes (Hospitalization)
  Sender: FDA-Public Use
  Company Number: US-BRISTOL-MYERS SQUIBB COMPANY-12649646

PATIENT
  Age: 51 Year
  Sex: Male

DRUGS (2)
  1. DEFINITY [Suspect]
     Indication: STRESS ECHOCARDIOGRAM
     Route: 042
     Dates: start: 20040702, end: 20040702
  2. HYZAAR [Concomitant]
     Indication: HYPERTENSION

REACTIONS (5)
  - BLOOD CREATININE INCREASED [None]
  - EXPOSURE TO CHEMICAL POLLUTION [None]
  - SERUM SICKNESS [None]
  - THROMBOCYTOPENIA [None]
  - TYPE IV HYPERSENSITIVITY REACTION [None]
